FAERS Safety Report 9228586 (Version 1)
Quarter: 2013Q2

REPORT INFORMATION
  Report Type: Report from Study
  Country: US (occurrence: US)
  Receive Date: 20130412
  Receipt Date: 20130412
  Transmission Date: 20140414
  Serious: No
  Sender: FDA-Public Use
  Company Number: US-VERTEX PHARMACEUTICALS INC.-2013-004716

PATIENT
  Age: 24 Year
  Sex: Female
  Weight: 47 kg

DRUGS (7)
  1. VX-950 (TELAPREVIR) [Suspect]
     Indication: HEPATITIS C
     Dosage: 750 MG, TID
     Route: 048
     Dates: start: 20130408
  2. RIBAPAK [Suspect]
     Indication: HEPATITIS C
     Dosage: 200MG, AM400 MGPM
     Route: 048
     Dates: start: 20130408
  3. PEG-INTRON [Suspect]
     Indication: HEPATITIS C
     Dosage: 80 ?G, QW
     Route: 058
     Dates: start: 20130408
  4. PHENERGAN                          /00033001/ [Concomitant]
     Dosage: 25 MG/ML, PRN
  5. IMODIUM [Concomitant]
     Dosage: 2 MG, PRN
     Route: 048
  6. NYSTATIN [Concomitant]
     Dosage: 1 DF, TID
     Route: 048
  7. CORTISONE [Concomitant]
     Dosage: UNK, PRN
     Route: 061

REACTIONS (1)
  - Pyrexia [Unknown]
